FAERS Safety Report 20524101 (Version 1)
Quarter: 2022Q1

REPORT INFORMATION
  Report Type: Report from Study
  Country: US (occurrence: US)
  Receive Date: 20220228
  Receipt Date: 20220228
  Transmission Date: 20220424
  Serious: No
  Sender: FDA-Public Use
  Company Number: US-HRARD-2021000109

PATIENT
  Age: 54 Year
  Sex: Female

DRUGS (7)
  1. METOPIRONE [Suspect]
     Active Substance: METYRAPONE
     Dosage: 500 MG IN THE MORNING, 500 MG AT NOON AND 250 MG IN THE AFTERNOON
     Route: 048
     Dates: start: 20201023
  2. CREON [Concomitant]
     Active Substance: PANCRELIPASE AMYLASE\PANCRELIPASE LIPASE\PANCRELIPASE PROTEASE
  3. A-HYDROCORT [Concomitant]
     Active Substance: HYDROCORTISONE SODIUM SUCCINATE
  4. NAPROXEN [Concomitant]
     Active Substance: NAPROXEN
  5. NIFEDIPINE [Concomitant]
     Active Substance: NIFEDIPINE
  6. PANTOPRAZOLE [Concomitant]
     Active Substance: PANTOPRAZOLE
  7. Potassium Chloride Micro [Concomitant]

REACTIONS (1)
  - Off label use [Not Recovered/Not Resolved]

NARRATIVE: CASE EVENT DATE: 20201023
